FAERS Safety Report 11833122 (Version 1)
Quarter: 2015Q4

REPORT INFORMATION
  Report Type: Spontaneous
  Country: US (occurrence: US)
  Receive Date: 20151214
  Receipt Date: 20151214
  Transmission Date: 20160305
  Serious: No
  Sender: FDA-Public Use
  Company Number: US-PERRIGO-14US010982

PATIENT
  Age: 37 Year
  Sex: Female

DRUGS (1)
  1. MINOXIDIL. [Suspect]
     Active Substance: MINOXIDIL
     Indication: ALOPECIA
     Dosage: LESS THAN 1 ML, BID
     Route: 061
     Dates: start: 201410, end: 201410

REACTIONS (4)
  - Application site exfoliation [Recovered/Resolved]
  - Accidental exposure to product [Recovered/Resolved]
  - Underdose [Recovered/Resolved]
  - Application site dryness [Recovered/Resolved]

NARRATIVE: CASE EVENT DATE: 201410
